FAERS Safety Report 5638231-5 (Version None)
Quarter: 2008Q1

REPORT INFORMATION
  Report Type: 
  Country: None (occurrence: None)
  Receive Date: 20080221
  Receipt Date: 20080213
  Transmission Date: 20080703
  Serious: Yes (Hospitalization, Other)
  Sender: FDA-Public Use
  Company Number: OSCN-PR-0701S-0024

PATIENT
  Age: 50 Year
  Sex: Male

DRUGS (2)
  1. OMNISCAN [Suspect]
     Indication: INTERVERTEBRAL DISC PROTRUSION
     Dosage: 18 ML, SINGLE DOSE, I.T.
     Route: 037
     Dates: start: 20070110, end: 20070110
  2. OMNISCAN [Suspect]
     Indication: PAIN IN EXTREMITY
     Dosage: 18 ML, SINGLE DOSE, I.T.
     Route: 037
     Dates: start: 20070110, end: 20070110

REACTIONS (13)
  - ALTERED STATE OF CONSCIOUSNESS [None]
  - AMNESIA [None]
  - BLOOD PRESSURE INCREASED [None]
  - CONFUSIONAL STATE [None]
  - CSF TEST ABNORMAL [None]
  - DISORIENTATION [None]
  - DRUG LEVEL INCREASED [None]
  - DYSPNOEA [None]
  - GRAND MAL CONVULSION [None]
  - MOTOR DYSFUNCTION [None]
  - NEUROLOGICAL SYMPTOM [None]
  - SPEECH DISORDER [None]
  - SWELLING [None]
